FAERS Safety Report 14684034 (Version 1)
Quarter: 2018Q1

REPORT INFORMATION
  Report Type: Spontaneous
  Country: US (occurrence: US)
  Receive Date: 20180327
  Receipt Date: 20180327
  Transmission Date: 20180509
  Serious: No
  Sender: FDA-Public Use
  Company Number: US-GLAXOSMITHKLINE-US2018045534

PATIENT
  Age: 65 Year
  Sex: Female

DRUGS (1)
  1. NICODERM CQ [Suspect]
     Active Substance: NICOTINE
     Indication: SMOKING CESSATION THERAPY
     Dosage: 14 UNK, UNK
     Dates: start: 201803

REACTIONS (4)
  - Application site rash [Unknown]
  - Application site pruritus [Unknown]
  - Application site swelling [Unknown]
  - Application site erythema [Unknown]
